FAERS Safety Report 7053653-6 (Version None)
Quarter: 2010Q4

REPORT INFORMATION
  Report Type: 
  Country: None (occurrence: None)
  Receive Date: 20101020
  Receipt Date: 20101014
  Transmission Date: 20110411
  Serious: Yes (Death)
  Sender: FDA-Public Use
  Company Number: TN-ROCHE-734220

PATIENT
  Sex: Female

DRUGS (2)
  1. PEGINTERFERON ALFA-2A [Suspect]
     Route: 058
     Dates: start: 20080519
  2. RIBAVIRIN [Suspect]
     Dosage: FREQUENCY : DAILY
     Route: 048
     Dates: start: 20080519

REACTIONS (1)
  - MYOCARDIAL INFARCTION [None]
